FAERS Safety Report 17367327 (Version 2)
Quarter: 2020Q4

REPORT INFORMATION
  Report Type: Spontaneous
  Country: SE (occurrence: SE)
  Receive Date: 20200204
  Receipt Date: 20201027
  Transmission Date: 20210113
  Serious: Yes (Death, Life-Threatening, Hospitalization)
  Sender: FDA-Public Use
  Company Number: SE-009507513-2001SWE011019

PATIENT
  Age: 71 Year
  Sex: Male

DRUGS (1)
  1. KEYTRUDA [Suspect]
     Active Substance: PEMBROLIZUMAB
     Indication: LUNG ADENOCARCINOMA
     Dosage: UNK

REACTIONS (8)
  - Dyspnoea [Fatal]
  - Respiratory muscle weakness [Fatal]
  - Confusional state [Fatal]
  - Bulbar palsy [Fatal]
  - Ophthalmoplegia [Fatal]
  - Respiratory acidosis [Fatal]
  - Visual impairment [Fatal]
  - Guillain-Barre syndrome [Fatal]

NARRATIVE: CASE EVENT DATE: 201912
